FAERS Safety Report 9457582 (Version 2)
Quarter: 2013Q3

REPORT INFORMATION
  Report Type: Spontaneous
  Country: US (occurrence: US)
  Receive Date: 20130814
  Receipt Date: 20130904
  Transmission Date: 20140515
  Serious: No
  Sender: FDA-Public Use
  Company Number: US-JNJFOC-20130712216

PATIENT
  Sex: Female

DRUGS (13)
  1. INVEGA [Suspect]
     Indication: SCHIZOPHRENIA
     Dosage: 2-6MG TABLETS AND 1-3MG TWICE A DAY
     Route: 048
     Dates: start: 201306
  2. INVEGA [Suspect]
     Indication: SCHIZOPHRENIA
     Route: 048
     Dates: start: 20130412, end: 20130806
  3. INVEGA [Suspect]
     Indication: SCHIZOPHRENIA
     Route: 048
     Dates: start: 20130618, end: 20130812
  4. INVEGA [Suspect]
     Indication: SCHIZOPHRENIA
     Dosage: 2-6 MG TABLETS
     Route: 048
     Dates: start: 201209, end: 201306
  5. INVEGA [Suspect]
     Indication: SCHIZOPHRENIA
     Route: 048
     Dates: start: 201207, end: 201209
  6. ZOCOR [Concomitant]
     Indication: BLOOD CHOLESTEROL
     Route: 065
     Dates: start: 201111
  7. CLONAZEPAM [Concomitant]
     Indication: CONVULSION
     Route: 065
  8. LAMOTRIGINE [Concomitant]
     Indication: BIPOLAR DISORDER
     Route: 065
  9. OXCARBAZEPINE [Concomitant]
     Indication: EPILEPSY
     Route: 065
  10. MELATONIN [Concomitant]
     Indication: SLEEP DISORDER THERAPY
     Route: 065
  11. SIMVASTATIN [Concomitant]
     Indication: BLOOD CHOLESTEROL
     Route: 065
  12. DOCUSATE  SODIUM [Concomitant]
     Indication: CONSTIPATION
     Route: 065
  13. TUSSIN CF [Concomitant]
     Indication: COUGH
     Dosage: 1-2 TEASPOONS
     Route: 065

REACTIONS (3)
  - Drug ineffective [Not Recovered/Not Resolved]
  - Adverse drug reaction [Unknown]
  - Affective disorder [Unknown]
